FAERS Safety Report 4589121-0 (Version None)
Quarter: 2005Q1

REPORT INFORMATION
  Report Type: 
  Country: None (occurrence: None)
  Receive Date: 20050125
  Receipt Date: 20040813
  Transmission Date: 20050727
  Serious: No
  Sender: FDA-Public Use
  Company Number: USA040361138

PATIENT
  Age: 73 Year
  Sex: Female
  Weight: 58 kg

DRUGS (9)
  1. FORTEO [Suspect]
     Indication: OSTEOPOROSIS
     Dosage: 20 UG/1 DAY
     Dates: start: 20040220
  2. CELEBREX [Concomitant]
  3. ZANTAC [Concomitant]
  4. NEXIUM [Concomitant]
  5. CALCIUM CARBONATE [Concomitant]
  6. VITAMIN E [Concomitant]
  7. OCUVITE [Concomitant]
  8. FEMHRT [Concomitant]
  9. ASCORBIC ACID [Concomitant]

REACTIONS (10)
  - ABDOMINAL DISTENSION [None]
  - ABDOMINAL PAIN [None]
  - BACK PAIN [None]
  - CHEST PAIN [None]
  - DEPRESSION [None]
  - DYSPNOEA EXACERBATED [None]
  - INJECTION SITE HAEMORRHAGE [None]
  - MOBILITY DECREASED [None]
  - STOMACH DISCOMFORT [None]
  - VISION BLURRED [None]
